FAERS Safety Report 9602596 (Version 2)
Quarter: 2013Q4

REPORT INFORMATION
  Report Type: Spontaneous
  Country: JP (occurrence: JP)
  Receive Date: 20131007
  Receipt Date: 20131018
  Transmission Date: 20140711
  Serious: Yes (Death)
  Sender: FDA-Public Use
  Company Number: JP-SA-2013SA097820

PATIENT
  Age: 63 Year
  Sex: Male
  Weight: 67.9 kg

DRUGS (7)
  1. TAXOTERE [Suspect]
     Indication: NON-SMALL CELL LUNG CANCER
     Dosage: 100MG (1 VIAL OF 80 MG AND 1 VIAL OF 20 MG)?DOSE: 80MG/BODY
     Route: 042
     Dates: start: 20130911, end: 20130911
  2. TAXOTERE [Suspect]
     Indication: NON-SMALL CELL LUNG CANCER
     Dosage: 100MG (1 VIAL OF 80 MG AND 1 VIAL OF 20 MG)?DOSE: 20 MG/BODY
     Route: 042
     Dates: start: 20130911, end: 20130911
  3. RANDA [Suspect]
     Indication: NON-SMALL CELL LUNG CANCER
     Dosage: 140MG/BODY
     Route: 042
     Dates: start: 20130911, end: 20130911
  4. MAGNESOL [Concomitant]
     Dosage: DOSE: 0.4V
     Dates: start: 20130911, end: 20130911
  5. ALOXI [Concomitant]
     Dates: start: 20130911, end: 20130911
  6. DECADRON [Concomitant]
     Dates: start: 20130911, end: 20130911
  7. LASIX [Concomitant]
     Dates: start: 20130911, end: 20130911

REACTIONS (2)
  - Circulatory collapse [Fatal]
  - Hyperhidrosis [Fatal]
